FAERS Safety Report 13436899 (Version 1)
Quarter: 2017Q2

REPORT INFORMATION
  Report Type: Spontaneous
  Country: US (occurrence: US)
  Receive Date: 20170413
  Receipt Date: 20170413
  Transmission Date: 20170830
  Serious: No
  Sender: FDA-Public Use
  Company Number: US-SA-2016SA195590

PATIENT
  Age: 64 Year
  Sex: Male

DRUGS (1)
  1. ALLEGRA D-12 HOUR [Suspect]
     Active Substance: FEXOFENADINE HYDROCHLORIDE\PSEUDOEPHEDRINE HYDROCHLORIDE
     Indication: MULTIPLE ALLERGIES
     Dosage: START DATE 15 YEARS AGO.STOP DATE 1 OR 1.5 YEARS.FREQUENCY ONE EVEREY FEW DAYS
     Route: 065

REACTIONS (3)
  - Blood pressure increased [Unknown]
  - Dry mouth [Unknown]
  - Headache [Unknown]
